FAERS Safety Report 18227539 (Version 4)
Quarter: 2020Q4

REPORT INFORMATION
  Report Type: Spontaneous
  Country: LV (occurrence: LV)
  Receive Date: 20200903
  Receipt Date: 20201112
  Transmission Date: 20210113
  Serious: Yes (Death, Other)
  Sender: FDA-Public Use
  Company Number: LV-009507513-2008LVA014912

PATIENT
  Age: 59 Year
  Sex: Female

DRUGS (2)
  1. NOLITERAX (INDAPAMIDE (+) PERINDOPRIL ARGININE) [Concomitant]
     Indication: ESSENTIAL HYPERTENSION
     Dosage: UNK UNK, QD
     Route: 048
     Dates: start: 20200801
  2. ZEPATIER [Suspect]
     Active Substance: ELBASVIR\GRAZOPREVIR
     Indication: CHRONIC HEPATITIS C
     Dosage: UNK UNK, QD
     Route: 048
     Dates: start: 20200731

REACTIONS (1)
  - Death [Fatal]

NARRATIVE: CASE EVENT DATE: 20200813
